FAERS Safety Report 10572583 (Version 3)
Quarter: 2015Q1

REPORT INFORMATION
  Report Type: Spontaneous
  Country: CZ (occurrence: CZ)
  Receive Date: 20141110
  Receipt Date: 20150205
  Transmission Date: 20150720
  Serious: Yes (Hospitalization, Other)
  Sender: FDA-Public Use
  Company Number: CZ-AMGEN-CZESP2014086241

PATIENT
  Age: 52 Year
  Sex: Female

DRUGS (5)
  1. DICLOFENAC DUO [Concomitant]
     Dosage: 75 MG, 1X/DAY
  2. ENBREL [Suspect]
     Active Substance: ETANERCEPT
     Indication: ANKYLOSING SPONDYLITIS
     Dosage: 50 MG, WEEKLY/ ONCE WEEKLY
     Route: 058
     Dates: start: 20090506, end: 201403
  3. ZALDIAR [Concomitant]
     Active Substance: ACETAMINOPHEN\TRAMADOL HYDROCHLORIDE
     Dosage: UNK, AS NEEDED/MAXIMUM 3 TABLETS PER DAY
  4. INDAP [Concomitant]
     Dosage: UNK MG, UNK
  5. TRITACE [Concomitant]
     Active Substance: RAMIPRIL
     Dosage: 5 MG, UNK

REACTIONS (4)
  - Venous thrombosis limb [Unknown]
  - Musculoskeletal disorder [Unknown]
  - Pulmonary embolism [Unknown]
  - C-reactive protein increased [Unknown]

NARRATIVE: CASE EVENT DATE: 2013
